FAERS Safety Report 6338972-0 (Version None)
Quarter: 2009Q3

REPORT INFORMATION
  Report Type: 
  Country: None (occurrence: None)
  Receive Date: 20090903
  Receipt Date: 20090828
  Transmission Date: 20100115
  Serious: Yes (Death, Hospitalization)
  Sender: FDA-Public Use
  Company Number: ES-CELGENEUS-144-21880-09070105

PATIENT
  Sex: Male
  Weight: 84 kg

DRUGS (5)
  1. REVLIMID [Suspect]
     Indication: MULTIPLE MYELOMA
     Route: 048
     Dates: start: 20090612, end: 20090701
  2. DEXAMETHASONE [Suspect]
     Indication: MULTIPLE MYELOMA
     Route: 048
     Dates: start: 20090612, end: 20090701
  3. ASPIRIN [Concomitant]
     Indication: ANTICOAGULANT THERAPY
     Route: 065
  4. STILNOX [Concomitant]
     Indication: HYPNOTHERAPY
     Route: 065
  5. ORFIDAL [Concomitant]
     Indication: HYPNOTHERAPY
     Route: 065

REACTIONS (3)
  - INSOMNIA [None]
  - MULTIPLE MYELOMA [None]
  - OBSESSIVE THOUGHTS [None]
